FAERS Safety Report 6933821-1 (Version None)
Quarter: 2010Q3

REPORT INFORMATION
  Report Type: 
  Country: None (occurrence: None)
  Receive Date: 20100820
  Receipt Date: 20100809
  Transmission Date: 20110219
  Serious: Yes (Other)
  Sender: FDA-Public Use
  Company Number: US-PFIZER INC-2010100572

PATIENT
  Age: 75 Year
  Sex: Female

DRUGS (3)
  1. LYRICA [Suspect]
     Indication: NEURALGIA
     Dosage: 25 MG, 3X/DAY
     Route: 048
     Dates: start: 20100621
  2. DILANTIN [Concomitant]
     Indication: CONVULSION
     Dosage: UNK
  3. DIAZEPAM [Concomitant]
     Dosage: UNK

REACTIONS (7)
  - DECUBITUS ULCER [None]
  - DRUG INEFFECTIVE [None]
  - EXCORIATION [None]
  - HEPATIC ENZYME INCREASED [None]
  - HYPOPHAGIA [None]
  - NEURALGIA [None]
  - SKIN EXFOLIATION [None]
